FAERS Safety Report 8671420 (Version 2)
Quarter: 2012Q4

REPORT INFORMATION
  Report Type: 
  Country: JP (occurrence: JP)
  Receive Date: 20120718
  Receipt Date: 20121030
  Transmission Date: 20130627
  Serious: Yes (Hospitalization)
  Sender: FDA-Public Use
  Company Number: JP-GLAXOSMITHKLINE-B0815146A

PATIENT
  Age: 67 Year
  Sex: Male

DRUGS (6)
  1. PAXIL [Suspect]
     Indication: DEPRESSION
     Dosage: 30MG Per day
     Route: 048
     Dates: start: 20100628, end: 20120708
  2. PAXIL [Suspect]
     Indication: DEPRESSION
     Dosage: 30MG Per day
     Route: 048
     Dates: start: 20120711
  3. DEPAS [Concomitant]
     Indication: INSOMNIA
     Dosage: 1MG Per day
     Route: 048
     Dates: start: 20100628, end: 20120708
  4. DESYREL [Concomitant]
     Indication: DEPRESSED MOOD
     Dosage: 50MG Per day
     Route: 048
     Dates: start: 20100628, end: 20120708
  5. SUNRYTHM [Concomitant]
     Indication: ARRHYTHMIA
     Dosage: 50MG Three times per day
     Route: 048
     Dates: start: 20100628, end: 20120708
  6. NITOROL [Concomitant]
     Indication: HYPERTENSION
     Dosage: 5MG Three times per day
     Route: 048
     Dates: start: 20100628, end: 20120708

REACTIONS (5)
  - Altered state of consciousness [Recovered/Resolved]
  - Hallucination [Recovered/Resolved]
  - Dehydration [Unknown]
  - Drug withdrawal syndrome [Unknown]
  - Psychiatric symptom [Recovered/Resolved]
